FAERS Safety Report 18397573 (Version 1)
Quarter: 2020Q4

REPORT INFORMATION
  Report Type: Spontaneous
  Country: CZ (occurrence: CZ)
  Receive Date: 20201019
  Receipt Date: 20201019
  Transmission Date: 20210114
  Serious: Yes (Other)
  Sender: FDA-Public Use
  Company Number: CZ-ACCORD-205383

PATIENT
  Age: 60 Year
  Sex: Male

DRUGS (5)
  1. FOLINIC ACID [Suspect]
     Active Substance: LEUCOVORIN
     Indication: RECTOSIGMOID CANCER
  2. PANITUMUMAB [Suspect]
     Active Substance: PANITUMUMAB
     Indication: RECTOSIGMOID CANCER
     Dosage: SUBSEQUENTLY ONLY 12 CYCLES OF MONOTHERAPY
  3. OXALIPLATIN. [Suspect]
     Active Substance: OXALIPLATIN
     Indication: RECTOSIGMOID CANCER
     Dosage: AFTER 34 CYCLES REDUCED TO 50% AND AFTER 36 CYCLES COMPLETELY DISCONTINUED
  4. FLUOROURACIL. [Suspect]
     Active Substance: FLUOROURACIL
     Indication: RECTOSIGMOID CANCER
  5. HEPARIN [Concomitant]
     Active Substance: HEPARIN SODIUM
     Indication: PULMONARY EMBOLISM
     Dosage: LOW MOLECULAR WEIGHT

REACTIONS (3)
  - Hypomagnesaemia [Unknown]
  - Skin toxicity [Unknown]
  - Neutropenia [Unknown]
